FAERS Safety Report 6177873-8 (Version None)
Quarter: 2009Q2

REPORT INFORMATION
  Report Type: 
  Country: None (occurrence: None)
  Receive Date: 20090501
  Receipt Date: 20090501
  Transmission Date: 20091009
  Serious: No
  Sender: FDA-Public Use
  Company Number: None

PATIENT
  Age: 69 Year
  Sex: Male
  Weight: 111.58 kg

DRUGS (1)
  1. GALANTAMINE [Suspect]
     Dosage: 8 MG EVERY DAY PO
     Route: 048
     Dates: start: 20090109, end: 20090227

REACTIONS (2)
  - CONFUSIONAL STATE [None]
  - PLEUROTHOTONUS [None]
